FAERS Safety Report 24003434 (Version 3)
Quarter: 2025Q2

REPORT INFORMATION
  Report Type: Spontaneous
  Country: CA (occurrence: CA)
  Receive Date: 20240624
  Receipt Date: 20250520
  Transmission Date: 20250717
  Serious: Yes (Other)
  Sender: INTERCEPT PHARMACEUTICALS
  Company Number: CA-ADVANZ PHARMA-202306004505

PATIENT
  Sex: Female

DRUGS (2)
  1. OCALIVA [Suspect]
     Active Substance: OBETICHOLIC ACID
     Indication: Primary biliary cholangitis
     Route: 048
     Dates: start: 20220314
  2. URSODIOL [Concomitant]
     Active Substance: URSODIOL
     Dates: start: 202106

REACTIONS (6)
  - Colon cancer [Not Recovered/Not Resolved]
  - Hepatic cancer [Unknown]
  - Surgery [Unknown]
  - Herpes zoster [Unknown]
  - Solar lentigo [Unknown]
  - Blood alkaline phosphatase increased [Unknown]
